FAERS Safety Report 10564761 (Version 1)
Quarter: 2014Q4

REPORT INFORMATION
  Report Type: Spontaneous
  Country: US (occurrence: US)
  Receive Date: 20141105
  Receipt Date: 20141105
  Transmission Date: 20150529
  Serious: Yes (Other)
  Sender: FDA-Public Use
  Company Number: US-AUROBINDO-AUR-APL-2014-11523

PATIENT
  Age: 65 Year
  Sex: Female

DRUGS (4)
  1. DESOXIMETASONE. [Suspect]
     Active Substance: DESOXIMETASONE
     Indication: ERYTHEMA MULTIFORME
     Dosage: 0.25 %, TWO TIMES A DAY
     Route: 065
  2. DOXYCYCLINE. [Suspect]
     Active Substance: DOXYCYCLINE
     Indication: ERYTHEMA
     Dosage: 100 MG, TWO TIMES A DAY
     Route: 065
  3. VALACICLOVIR 1000MG [Suspect]
     Active Substance: VALACYCLOVIR HYDROCHLORIDE
     Indication: ERYTHEMA MULTIFORME
     Dosage: 1 G, DAILY
     Route: 065
  4. DOXYCYCLINE. [Suspect]
     Active Substance: DOXYCYCLINE
     Indication: SKIN LESION

REACTIONS (1)
  - Treatment failure [Unknown]
